FAERS Safety Report 8716310 (Version 2)
Quarter: 2013Q4

REPORT INFORMATION
  Report Type: Spontaneous
  Country: US (occurrence: US)
  Receive Date: 20120810
  Receipt Date: 20131031
  Transmission Date: 20140711
  Serious: No
  Sender: FDA-Public Use
  Company Number: US-009507513-2012SP023635

PATIENT
  Sex: 0

DRUGS (1)
  1. PROVENTIL [Suspect]

REACTIONS (1)
  - No therapeutic response [Unknown]
